FAERS Safety Report 8596254-0 (Version None)
Quarter: 2012Q3

REPORT INFORMATION
  Report Type: 
  Country: None (occurrence: None)
  Receive Date: 20120815
  Receipt Date: 20120814
  Transmission Date: 20120928
  Serious: Yes (Hospitalization)
  Sender: FDA-Public Use
  Company Number: CA-TEVA-353720USA

PATIENT
  Age: 81 Year
  Sex: Female
  Weight: 54.48 kg

DRUGS (9)
  1. COLECALCIFEROL [Concomitant]
  2. CRESTOR [Concomitant]
  3. IRBESARTAN [Concomitant]
  4. CALCIUM CARBONATE [Concomitant]
  5. HYDROCHLOROTHIAZIDE [Concomitant]
  6. METFORMIN HYDROCHLORIDE [Suspect]
     Dosage: 1500 MILLIGRAM DAILY;
     Route: 048
  7. RISEDRONATE SODIUM [Concomitant]
  8. CEPHALEXIN [Concomitant]
     Route: 048
  9. JANUVIA [Concomitant]
     Route: 048

REACTIONS (4)
  - PAIN IN EXTREMITY [None]
  - HYPOAESTHESIA [None]
  - PRODUCT SUBSTITUTION ISSUE [None]
  - OEDEMA PERIPHERAL [None]
